FAERS Safety Report 7239405-2 (Version None)
Quarter: 2011Q1

REPORT INFORMATION
  Report Type: 
  Country: None (occurrence: None)
  Receive Date: 20110121
  Receipt Date: 20110104
  Transmission Date: 20110831
  Serious: Yes (Other)
  Sender: FDA-Public Use
  Company Number: US-AMGEN-USASP2011000384

PATIENT

DRUGS (13)
  1. LEVOTHYROXINE SODIUM [Concomitant]
     Indication: HYPOTHYROIDISM
     Dosage: UNK
  2. BUPROPION [Concomitant]
     Indication: DEPRESSION
     Dosage: UNK
  3. EZETIMIBE [Concomitant]
     Indication: BLOOD CHOLESTEROL
     Dosage: UNK
     Dates: start: 20080801
  4. ATENOLOL [Concomitant]
     Indication: HYPERTENSION
     Dosage: UNK
     Dates: start: 20020101
  5. ENBREL [Suspect]
     Indication: RHEUMATOID ARTHRITIS
     Dosage: UNK
  6. HUMIRA [Concomitant]
     Dosage: 40 MG, UNK
     Dates: start: 20071001, end: 20100201
  7. ARAVA [Concomitant]
  8. HYDROCHLOROTHIAZIDE [Concomitant]
     Indication: HYPERTENSION
     Dosage: UNK
     Dates: start: 20030116
  9. DEXLANSOPRAZOLE [Concomitant]
     Indication: GASTROOESOPHAGEAL REFLUX DISEASE
     Dosage: UNK
     Dates: start: 20091201
  10. HUMIRA [Concomitant]
     Indication: RHEUMATOID ARTHRITIS
     Dosage: 40 MG, Q2WK
     Dates: start: 20040122, end: 20080201
  11. HUMIRA [Concomitant]
     Dosage: UNK
     Dates: start: 20100501
  12. CELECOXIB [Concomitant]
     Indication: RHEUMATOID ARTHRITIS
     Dosage: UNK
     Dates: start: 19990701
  13. VENLAFAXINE [Concomitant]
     Indication: DEPRESSION
     Dosage: UNK

REACTIONS (19)
  - ACQUIRED OESOPHAGEAL WEB [None]
  - SKIN ODOUR ABNORMAL [None]
  - MALAISE [None]
  - ARTHRALGIA [None]
  - ABDOMINAL PAIN UPPER [None]
  - ARTHRITIS [None]
  - ABDOMINAL PAIN [None]
  - PAIN [None]
  - FUNGAL INFECTION [None]
  - BLOOD CHOLESTEROL INCREASED [None]
  - UPPER RESPIRATORY TRACT INFECTION [None]
  - CHOLELITHIASIS [None]
  - MUSCLE TWITCHING [None]
  - INSOMNIA [None]
  - GAIT DISTURBANCE [None]
  - NAUSEA [None]
  - ERYTHEMA [None]
  - GASTROOESOPHAGEAL REFLUX DISEASE [None]
  - SKIN IRRITATION [None]
